FAERS Safety Report 9633598 (Version 2)
Quarter: 2013Q4

REPORT INFORMATION
  Report Type: Spontaneous
  Country: CA (occurrence: None)
  Receive Date: 20131017
  Receipt Date: 20131106
  Transmission Date: 20140711
  Serious: Yes (Hospitalization, Other)
  Sender: FDA-Public Use
  Company Number: ACO_39062_2013

PATIENT
  Age: 70 Year
  Sex: Male

DRUGS (5)
  1. FAMPYRA (DALFAMPRIDINE) TABLET, 10MG [Suspect]
     Indication: MULTIPLE SCLEROSIS
     Route: 048
     Dates: start: 201308, end: 201309
  2. FAMPYRA (DALFAMPRIDINE) TABLET, 10MG [Suspect]
     Indication: GAIT DISTURBANCE
     Route: 048
     Dates: start: 201308, end: 201309
  3. VENLAFAXINE (VENLAFAXINE HYDROCHLORIDE) (UNKNOWN) (VENLAFAXINE HYDROCHLORIDE) [Concomitant]
  4. SENOKOT (SENNOSIDE A+B) [Concomitant]
  5. DOCUSATE SODIUM (DOCUSATE SODIUM) [Concomitant]

REACTIONS (2)
  - Convulsion [None]
  - Urinary tract infection [None]
